FAERS Safety Report 25035985 (Version 1)
Quarter: 2025Q1

REPORT INFORMATION
  Report Type: Spontaneous
  Country: FR (occurrence: FR)
  Receive Date: 20250304
  Receipt Date: 20250304
  Transmission Date: 20250408
  Serious: Yes (Other)
  Sender: DAIICHI
  Company Number: None

PATIENT
  Age: 46 Year
  Sex: Female
  Weight: 70 kg

DRUGS (3)
  1. ENHERTU [Suspect]
     Active Substance: FAM-TRASTUZUMAB DERUXTECAN-NXKI
     Indication: Breast cancer
     Dosage: 5.4 MG/KG, ONCE EVERY 3 WK (APPROXIMATELY 378 MG)
     Route: 042
     Dates: start: 20231025, end: 20240202
  2. ENHERTU [Suspect]
     Active Substance: FAM-TRASTUZUMAB DERUXTECAN-NXKI
     Dosage: 4.4 MG/KG, ONCE EVERY 3 WK (APPROXIMATELY 300 MG)
     Route: 042
     Dates: start: 20240311, end: 20240403
  3. ENHERTU [Suspect]
     Active Substance: FAM-TRASTUZUMAB DERUXTECAN-NXKI
     Dosage: 3.2 MG/KG, ONCE EVERY 3 WK (APPROXIMATELY 220 MG)
     Route: 042
     Dates: start: 20240507, end: 20240529

REACTIONS (1)
  - Cholestatic liver injury [Recovering/Resolving]

NARRATIVE: CASE EVENT DATE: 20231223
